FAERS Safety Report 5338345-3 (Version None)
Quarter: 2007Q2

REPORT INFORMATION
  Report Type: 
  Country: None (occurrence: None)
  Receive Date: 20070405
  Receipt Date: 20061116
  Transmission Date: 20071010
  Serious: No
  Sender: FDA-Public Use
  Company Number: US200611003148

PATIENT
  Age: 48 Year
  Sex: Female

DRUGS (10)
  1. CYMBALTA [Suspect]
     Indication: PAIN
     Dosage: 60 MG, DAILY (1/D), ORAL
     Route: 048
     Dates: start: 20060315, end: 20060809
  2. HUMULIN N [Concomitant]
  3. TRIPHASIL-28 [Concomitant]
  4. ESTROGENS SOL/INJ [Concomitant]
  5. PRAVACHOL [Concomitant]
  6. LISINOPRIL [Concomitant]
  7. ASPIRIN [Concomitant]
  8. PROTONIX [Concomitant]
  9. MAXALT [Concomitant]
  10. ACTOS [Concomitant]

REACTIONS (4)
  - DYSPEPSIA [None]
  - MEMORY IMPAIRMENT [None]
  - NIGHT SWEATS [None]
  - SOMNOLENCE [None]
